FAERS Safety Report 8207778-X (Version None)
Quarter: 2012Q1

REPORT INFORMATION
  Report Type: 
  Country: None (occurrence: None)
  Receive Date: 20120313
  Receipt Date: 20120313
  Transmission Date: 20120608
  Serious: Yes (Hospitalization)
  Sender: FDA-Public Use
  Company Number: None

PATIENT
  Age: 59 Year
  Sex: Female
  Weight: 49 kg

DRUGS (9)
  1. DOCETAXEL [Suspect]
     Indication: NON-SMALL CELL LUNG CANCER
     Dosage: 75MG/M2,Q21DAYS,IV
     Route: 042
     Dates: start: 20120301
  2. LORAZEPAM [Concomitant]
  3. DEXAMETHASONE [Concomitant]
  4. ONDANSETRON [Concomitant]
  5. FLUOXETINE [Concomitant]
  6. METHYLPHENIDATE [Concomitant]
  7. ONDANSETRON [Suspect]
     Indication: NON-SMALL CELL LUNG CANCER
     Dosage: 100MG,DAYS 2-19/21;PO
     Route: 048
     Dates: start: 20020301
  8. OXYCODONE HCL EXTENDED-RELEASE [Concomitant]
  9. OXYCODONE HCL [Concomitant]

REACTIONS (8)
  - PYREXIA [None]
  - TOXICITY TO VARIOUS AGENTS [None]
  - FEBRILE NEUTROPENIA [None]
  - PLEURITIC PAIN [None]
  - OROPHARYNGEAL PAIN [None]
  - NAUSEA [None]
  - DIARRHOEA [None]
  - VOMITING [None]
